FAERS Safety Report 9671971 (Version 1)
Quarter: 2013Q4

REPORT INFORMATION
  Report Type: Spontaneous
  Country: FR (occurrence: None)
  Receive Date: 20131104
  Receipt Date: 20131104
  Transmission Date: 20140711
  Serious: Yes (Other)
  Sender: FDA-Public Use
  Company Number: 2013306794

PATIENT
  Sex: Male

DRUGS (2)
  1. FRAGMINE (DALTEPARIN SODIUM) SOLUTION FOR INJECTION [Suspect]
     Indication: VENOUS THROMBOSIS
     Route: 058
     Dates: start: 20131001, end: 20131004
  2. INNOHEP (HEPARIN-FRACTION, SODIUM SALT) [Concomitant]

REACTIONS (2)
  - Muscle haemorrhage [None]
  - Anaemia [None]
